FAERS Safety Report 7277154-5 (Version None)
Quarter: 2011Q1

REPORT INFORMATION
  Report Type: 
  Country: None (occurrence: None)
  Receive Date: 20110202
  Receipt Date: 20110202
  Transmission Date: 20110831
  Serious: No
  Sender: FDA-Public Use
  Company Number: None

PATIENT
  Age: 63 Year
  Sex: Female
  Weight: 78.4723 kg

DRUGS (1)
  1. RECLAST [Suspect]

REACTIONS (4)
  - FEELING ABNORMAL [None]
  - LIGAMENT SPRAIN [None]
  - GAIT DISTURBANCE [None]
  - PAIN [None]
